FAERS Safety Report 6422933-7 (Version None)
Quarter: 2009Q4

REPORT INFORMATION
  Report Type: 
  Country: None (occurrence: None)
  Receive Date: 20091102
  Receipt Date: 20091023
  Transmission Date: 20100525
  Serious: Yes (Other)
  Sender: FDA-Public Use
  Company Number: SE-ELI_LILLY_AND_COMPANY-SE200910006533

PATIENT
  Sex: Female

DRUGS (7)
  1. ALIMTA [Suspect]
     Indication: NON-SMALL CELL LUNG CANCER
     Dosage: 500 MG/M2, OTHER
     Route: 065
     Dates: start: 20090820
  2. ALIMTA [Suspect]
     Dosage: 720 MG, OTHER
     Route: 065
     Dates: start: 20090909, end: 20090909
  3. PARAPLATIN [Concomitant]
     Indication: NON-SMALL CELL LUNG CANCER
     Dosage: 430 MG, OTHER
     Route: 065
     Dates: start: 20090820
  4. PARAPLATIN [Concomitant]
     Dosage: 430 MG, OTHER
     Route: 065
     Dates: start: 20090909, end: 20090909
  5. VITAMINS NOS [Concomitant]
     Indication: SUPPLEMENTATION THERAPY
     Dosage: UNK, UNKNOWN
     Route: 065
     Dates: start: 20090101
  6. DEXAMETHASONE [Concomitant]
     Indication: PROPHYLAXIS
     Dosage: UNK, UNKNOWN
     Route: 065
     Dates: start: 20090101
  7. SODIUM CHLORIDE [Concomitant]
     Dosage: UNK, UNKNOWN
     Route: 065
     Dates: start: 20090101

REACTIONS (1)
  - ANAPHYLACTIC SHOCK [None]
